FAERS Safety Report 6862211-5 (Version None)
Quarter: 2010Q3

REPORT INFORMATION
  Report Type: 
  Country: None (occurrence: None)
  Receive Date: 20100719
  Receipt Date: 20100708
  Transmission Date: 20110219
  Serious: Yes (Death)
  Sender: FDA-Public Use
  Company Number: 015283

PATIENT
  Sex: 0

DRUGS (1)
  1. KEPPRA [Suspect]
     Dosage: 500 MG BID TRANSPLACENTAL
     Route: 064

REACTIONS (3)
  - INTRA-UTERINE DEATH [None]
  - MATERNAL DRUGS AFFECTING FOETUS [None]
  - PREMATURE BABY [None]
